FAERS Safety Report 6260246-7 (Version None)
Quarter: 2009Q3

REPORT INFORMATION
  Report Type: 
  Country: None (occurrence: None)
  Receive Date: 20090708
  Receipt Date: 20090629
  Transmission Date: 20100115
  Serious: Yes (Hospitalization)
  Sender: FDA-Public Use
  Company Number: PT-WATSON-2009-05010

PATIENT
  Age: 49 Year
  Sex: Female

DRUGS (2)
  1. DISULFIRAM (WATSON LABORATORIES) [Suspect]
     Indication: POISONING DELIBERATE
     Dosage: 15 G, SINGLE
     Route: 048
  2. ALCOHOL                            /00002101/ [Suspect]
     Indication: POISONING DELIBERATE
     Dosage: UNK
     Route: 048

REACTIONS (3)
  - ALCOHOL INTOLERANCE [None]
  - CARDIOGENIC SHOCK [None]
  - OVERDOSE [None]
